FAERS Safety Report 8712197 (Version 2)
Quarter: 2012Q4

REPORT INFORMATION
  Report Type: 
  Country: FR (occurrence: FR)
  Receive Date: 20120807
  Receipt Date: 20120921
  Transmission Date: 20130627
  Serious: Yes (Hospitalization)
  Sender: FDA-Public Use
  Company Number: FR-SANOFI-AVENTIS-2012SA021320

PATIENT
  Age: 61 Year
  Sex: Male

DRUGS (6)
  1. LOVENOX [Suspect]
     Indication: DRUG USE FOR UNKNOWN INDICATION
     Route: 058
     Dates: start: 20120226, end: 20120227
  2. LOVENOX [Suspect]
     Indication: DRUG USE FOR UNKNOWN INDICATION
     Route: 058
     Dates: start: 20120227, end: 20120302
  3. PREVISCAN [Suspect]
     Indication: THROMBOSIS PROPHYLAXIS
     Dosage: 20 or 25 mg
     Route: 048
     Dates: start: 20120207, end: 20120226
  4. PREVISCAN [Suspect]
     Indication: THROMBOSIS PROPHYLAXIS
     Route: 048
     Dates: start: 20120227, end: 20120302
  5. TAHOR [Concomitant]
     Route: 048
  6. LAROXYL [Concomitant]
     Route: 048
     Dates: start: 20120210

REACTIONS (3)
  - International normalised ratio increased [Recovered/Resolved]
  - Subdural haematoma [Recovered/Resolved with Sequelae]
  - Anaemia [Recovering/Resolving]
